FAERS Safety Report 7267677-7 (Version None)
Quarter: 2011Q1

REPORT INFORMATION
  Report Type: 
  Country: None (occurrence: None)
  Receive Date: 20110201
  Receipt Date: 20110119
  Transmission Date: 20110831
  Serious: Yes (Hospitalization)
  Sender: FDA-Public Use
  Company Number: DE-ROCHE-745641

PATIENT
  Sex: Female
  Weight: 162 kg

DRUGS (8)
  1. PREDNISONE [Concomitant]
     Dates: start: 20101123, end: 20101123
  2. TAVEGIL [Concomitant]
  3. RANITIN [Concomitant]
     Dates: start: 20101123, end: 20101123
  4. ENALAPRIL MALEATE [Concomitant]
  5. NITRENDIPIN [Concomitant]
  6. CAPECITABINE [Suspect]
     Route: 048
     Dates: start: 20101012
  7. CELLONDAN [Concomitant]
     Dates: start: 20101123, end: 20101123
  8. BEVACIZUMAB [Suspect]
     Route: 042
     Dates: start: 20101012

REACTIONS (2)
  - VERTIGO [None]
  - URINARY TRACT INFECTION [None]
